FAERS Safety Report 5225879-5 (Version None)
Quarter: 2007Q1

REPORT INFORMATION
  Report Type: 
  Country: None (occurrence: None)
  Receive Date: 20070130
  Receipt Date: 20070130
  Transmission Date: 20070707
  Serious: Yes (Life-Threatening, Hospitalization)
  Sender: FDA-Public Use
  Company Number: None

PATIENT
  Age: 47 Year
  Sex: Male
  Weight: 84 kg

DRUGS (2)
  1. ENBREL [Suspect]
     Indication: RHEUMATOID ARTHRITIS
     Dosage: 25 MG  TWICE WEEKLY  SQ
     Route: 058
     Dates: start: 20000101, end: 20061228
  2. PREDNISONE     12.5 MG [Suspect]
     Dosage: 12.5 MG  DAILY  PO
     Route: 048
     Dates: start: 20000101, end: 20061228

REACTIONS (1)
  - SALMONELLOSIS [None]
